FAERS Safety Report 22276431 (Version 1)
Quarter: 2023Q2

REPORT INFORMATION
  Report Type: Spontaneous
  Country: US (occurrence: US)
  Receive Date: 20230503
  Receipt Date: 20230503
  Transmission Date: 20230722
  Serious: Yes (Other)
  Sender: FDA-Public Use
  Company Number: US-CELLTRION INC.-2022US018356

PATIENT

DRUGS (1)
  1. TRUXIMA [Suspect]
     Active Substance: RITUXIMAB-ABBS
     Indication: B-cell small lymphocytic lymphoma
     Dosage: 700 MG, EVERY 21 DAYS
     Dates: start: 20221018

REACTIONS (2)
  - B-cell small lymphocytic lymphoma [Unknown]
  - Off label use [Unknown]
